FAERS Safety Report 4566291-1 (Version None)
Quarter: 2005Q1

REPORT INFORMATION
  Report Type: 
  Country: None (occurrence: None)
  Receive Date: 20050201
  Receipt Date: 20041230
  Transmission Date: 20050727
  Serious: Yes (Other)
  Sender: FDA-Public Use
  Company Number: US-BRISTOL-MYERS SQUIBB COMPANY-12810016

PATIENT
  Age: 53 Year
  Sex: Female
  Weight: 57 kg

DRUGS (7)
  1. CARBOPLATIN [Suspect]
     Indication: NON-SMALL CELL LUNG CANCER
     Dosage: 1ST DOSE: 16AUG04
     Route: 042
     Dates: start: 20040907, end: 20040907
  2. PEMETREXED DISODIUM [Suspect]
     Indication: NON-SMALL CELL LUNG CANCER
     Route: 042
     Dates: start: 20040907, end: 20040907
  3. RADIATION THERAPY [Suspect]
     Indication: NON-SMALL CELL LUNG CANCER
     Dates: start: 20040816, end: 20040924
  4. ALBUTEROL [Concomitant]
     Indication: COUGH
     Dates: start: 20040101
  5. VITAMIN B-12 [Concomitant]
     Route: 030
     Dates: start: 20040924, end: 20040924
  6. COUMADIN [Concomitant]
     Indication: ATRIAL FIBRILLATION
  7. FOLIC ACID [Concomitant]
     Dates: start: 20040806

REACTIONS (2)
  - MEDIASTINAL FIBROSIS [None]
  - RADIATION PNEUMONITIS [None]
